FAERS Safety Report 10440237 (Version 1)
Quarter: 2014Q3

REPORT INFORMATION
  Report Type: Spontaneous
  Country: US (occurrence: US)
  Receive Date: 20140908
  Receipt Date: 20140908
  Transmission Date: 20150326
  Serious: No
  Sender: FDA-Public Use
  Company Number: US-BRISTOL-MYERS SQUIBB COMPANY-20139994

PATIENT
  Age: 80 Year
  Sex: Female
  Weight: 81.63 kg

DRUGS (4)
  1. LEXAPRO [Concomitant]
     Active Substance: ESCITALOPRAM OXALATE
  2. ABILIFY [Suspect]
     Active Substance: ARIPIPRAZOLE
     Indication: ANXIETY
  3. ABILIFY [Suspect]
     Active Substance: ARIPIPRAZOLE
     Indication: DEPRESSION
  4. OXYCODONE [Concomitant]
     Active Substance: OXYCODONE

REACTIONS (2)
  - Off label use [Unknown]
  - Memory impairment [Unknown]
